FAERS Safety Report 10058220 (Version 3)
Quarter: 2014Q4

REPORT INFORMATION
  Report Type: Spontaneous
  Country: US (occurrence: US)
  Receive Date: 20140404
  Receipt Date: 20141007
  Transmission Date: 20150528
  Serious: No
  Sender: FDA-Public Use
  Company Number: US-PFIZER INC-2014093399

PATIENT
  Age: 71 Year
  Sex: Female
  Weight: 122.45 kg

DRUGS (36)
  1. CALCIUM CITRATE [Concomitant]
     Active Substance: CALCIUM CITRATE
     Dosage: (315 MG, 200 UNIT TABLET) TAKE 2 TABLETS TWICE A DAY
     Route: 048
     Dates: end: 20120212
  2. COLACE [Concomitant]
     Active Substance: DOCUSATE SODIUM
     Dosage: 100 MG, 2X/DAY (1 CAPSULE TWICE A DAY BY ORAL ROUTE AS NEEDED)
     Route: 048
  3. SULFAMETHOXAZOLE/TRIMETHOPRIM [Concomitant]
     Active Substance: SULFAMETHOXAZOLE\TRIMETHOPRIM
     Dosage: SULFAMETHOXAZOLE 800 MG, TRIMETHOPRIM 160 MG (1 PO BID)
  4. PREDNISONE. [Concomitant]
     Active Substance: PREDNISONE
     Indication: OSTEOPOROSIS
     Dosage: 60 MG, UNK (Q EVERY 6 MONTHS )
  5. ADVAIR DISKUS [Concomitant]
     Active Substance: FLUTICASONE PROPIONATE\SALMETEROL XINAFOATE
     Dosage: (FLUTICASONE PROPIONATE 250MCG, SALMETEROL XINAFOATE 50MCG) EVERY 12 HOURS BY INHALATION
  6. KLOR-CON [Concomitant]
     Active Substance: POTASSIUM CHLORIDE
     Dosage: 20 MEQ, 2X/DAY (1 TABLET TWICE A DAY BY ORAL ROUTE FOR 30 DAYS)
     Route: 048
  7. PAROXETINE [Concomitant]
     Active Substance: PAROXETINE\PAROXETINE HYDROCHLORIDE
     Dosage: 40 MG, DAILY (1 TABLET EVERY DAY BY ORAL ROUTE)
     Route: 048
  8. PROLIA [Concomitant]
     Active Substance: DENOSUMAB
     Indication: OSTEOPOROSIS
     Dosage: 60 MG/ML, (EVERY SIX MONTHS)
     Route: 058
     Dates: start: 20130503
  9. GABAPENTIN. [Concomitant]
     Active Substance: GABAPENTIN
     Dosage: 600 MG, 3X/DAY (1 TABLET 3 TIMES A DAY BY ORAL ROUTE)
     Route: 048
  10. HYDROXYCHLOROQUINE [Concomitant]
     Active Substance: HYDROXYCHLOROQUINE
     Dosage: 200 MG, 2X/DAY (TAKE 1 TABLET(S) TWICE A DAY )
     Route: 048
  11. ADVAIR HFA [Concomitant]
     Active Substance: FLUTICASONE PROPIONATE\SALMETEROL XINAFOATE
     Indication: ASTHMA
     Dosage: UNK, DAILY
  12. MYRBETRIQ [Concomitant]
     Active Substance: MIRABEGRON
     Dosage: 50 MG, DAILY (1 TABLET EVERY DAY BY ORAL ROUTE)
     Route: 048
  13. SIMVASTATIN. [Concomitant]
     Active Substance: SIMVASTATIN
     Dosage: 20 MG, DAILY (1 TABLET EVERY DAY BY ORAL ROUTE)
     Route: 048
  14. SULFASALAZINE. [Concomitant]
     Active Substance: SULFASALAZINE
     Dosage: 500 MG, 3X/DAY (2 TABLET 3 TIMES A DAY BY ORAL ROUTE AFTER MEALS FOR 30 DAYS)
     Route: 048
  15. XELJANZ [Suspect]
     Active Substance: TOFACITINIB CITRATE
     Indication: RHEUMATOID ARTHRITIS
     Dosage: 5 MG, 2X/DAY
     Route: 048
     Dates: start: 20140328
  16. GUAIFENESIN. [Concomitant]
     Active Substance: GUAIFENESIN
     Dosage: UNK (10 TO 100 MG/5 ML ORAL LIQUID)
  17. MECLIZINE [Concomitant]
     Active Substance: MECLIZINE\MECLIZINE HYDROCHLORIDE
     Dosage: 25 MG, AS NEEDED
  18. MONTELUKAST [Concomitant]
     Active Substance: MONTELUKAST SODIUM
     Dosage: 10 MG, DAILY (1 TABLET EVERY DAY BY ORAL ROUTE)
     Route: 048
  19. SPIRIVA [Concomitant]
     Active Substance: TIOTROPIUM BROMIDE MONOHYDRATE
     Indication: ASTHMA
     Dosage: 18 MCG (INHALE 1 CAPSULE (S) EVERYDAY BY INHALATION ROUTE AS NEEDED)
  20. ASPIRIN. [Concomitant]
     Active Substance: ASPIRIN
     Dosage: 81 MG, DAILY (1 TABLET EVERY DAY)
     Route: 048
  21. FERROUS SULFATE [Concomitant]
     Active Substance: FERROUS SULFATE\FERROUS SULFATE, DRIED
     Dosage: 325 MG, 1X/DAY
     Route: 048
  22. HYDROCODONE W/ACETAMINOPHEN [Concomitant]
     Active Substance: ACETAMINOPHEN\HYDROCODONE BITARTRATE
     Dosage: (HYDROCODONE 10MG,ACETAMINOPHEN 325MG 2 TABLETS 3 TIMES A DAY BY ORAL ROUTE FOR 30 DAYS)
     Route: 048
  23. OXYCODONE [Concomitant]
     Active Substance: OXYCODONE
     Dosage: 15 MG, 3X/DAY (1 PO TID PRN)
     Route: 048
  24. XELJANZ [Suspect]
     Active Substance: TOFACITINIB CITRATE
     Dosage: UNK
     Dates: start: 20140618, end: 2014
  25. XELJANZ [Suspect]
     Active Substance: TOFACITINIB CITRATE
     Dosage: UNK
     Dates: start: 2014, end: 20140818
  26. PREDNISONE. [Concomitant]
     Active Substance: PREDNISONE
     Dosage: 10 MG, 2X/DAY
     Route: 048
     Dates: end: 20140802
  27. PREDNISONE. [Concomitant]
     Active Substance: PREDNISONE
     Dosage: 5 MG, DAILY (1 PO DAILY)UNK
     Route: 048
     Dates: end: 20140802
  28. FOLIC ACID. [Concomitant]
     Active Substance: FOLIC ACID
     Dosage: 1 MG, 1X/DAY
     Route: 048
  29. PANTOPRAZOLE [Concomitant]
     Active Substance: PANTOPRAZOLE SODIUM
     Dosage: 40 MG, DAILY (1 TABLET EVERY DAY BY ORAL ROUTE)
     Route: 048
  30. COTRIMOXAZOLE [Concomitant]
     Active Substance: SULFAMETHOXAZOLE\TRIMETHOPRIM
     Dosage: 160 MG, 2X/DAY (1 PO BID)
     Route: 048
  31. ACETAMINOPHEN. [Concomitant]
     Active Substance: ACETAMINOPHEN
     Dosage: 325 MG, AS NEEDED (EVERY 6 HOURS BY ORAL ROUTE AS NEEDED)
     Route: 048
  32. AMOXICILLIN. [Concomitant]
     Active Substance: AMOXICILLIN
     Dosage: 500 MG, 2X/DAY (1 CAPSULE TWICE A DAY BY ORAL ROUTE FOR 30 DAYS)
     Route: 048
  33. FUROSEMIDE. [Concomitant]
     Active Substance: FUROSEMIDE
     Dosage: 40 MG, DAILY (1 TABLET EVERY DAY BY ORAL ROUTE FOR 30 DAYS)
     Route: 048
  34. LEFLUNOMIDE. [Concomitant]
     Active Substance: LEFLUNOMIDE
     Dosage: 20 MG, 1X/DAY (1 TABLET EVERY DAY BY ORAL ROUTE)
     Route: 048
  35. MIRALAX [Concomitant]
     Active Substance: POLYETHYLENE GLYCOL 3350
     Dosage: UNK, AS NEEDED
  36. CHLOROQUINE [Concomitant]
     Active Substance: CHLOROQUINE\CHLOROQUINE PHOSPHATE
     Dosage: 200 MG, 2X/DAY (1 TABLET TWICE A DAY BY ORAL ROUTE)
     Route: 048

REACTIONS (16)
  - Cough [Not Recovered/Not Resolved]
  - Back pain [Unknown]
  - Malaise [Unknown]
  - Musculoskeletal pain [Unknown]
  - Dry mouth [Unknown]
  - Pain in extremity [Unknown]
  - Balance disorder [Unknown]
  - Nasopharyngitis [Unknown]
  - Dry eye [Unknown]
  - Muscle spasms [Unknown]
  - Fluid retention [Unknown]
  - Synovitis [Unknown]
  - Fall [Unknown]
  - Arthralgia [Unknown]
  - Drug ineffective [Unknown]
  - Fatigue [Unknown]

NARRATIVE: CASE EVENT DATE: 20140328
